FAERS Safety Report 10229560 (Version 3)
Quarter: 2014Q3

REPORT INFORMATION
  Report Type: Spontaneous
  Country: AU (occurrence: None)
  Receive Date: 20140609
  Receipt Date: 20140709
  Transmission Date: 20150326
  Serious: Yes (Life-Threatening, Hospitalization, Other)
  Sender: FDA-Public Use
  Company Number: AUR-APL-2014-06169

PATIENT
  Sex: Male
  Weight: 2.5 kg

DRUGS (4)
  1. QUETIAPINE [Suspect]
     Active Substance: QUETIAPINE
     Indication: PRODUCT USED FOR UNKNOWN INDICATION
     Route: 064
  2. CALCIUM (CALCIUM) [Concomitant]
     Active Substance: CALCIUM
  3. BLACKMORES PREGNANCY + BREAST-FEEDING FORMULA (FISH OIL, MINERAL NOS, VITAMINS NOS) [Concomitant]
  4. FORMULA (FISH OIL, MINERALS NOS, VITAMINS NOS) [Concomitant]

REACTIONS (13)
  - Forceps delivery [None]
  - Arthropod bite [None]
  - Exposure during pregnancy [None]
  - Maternal drugs affecting foetus [None]
  - Apgar score low [None]
  - Premature labour [None]
  - Neonatal respiratory distress syndrome [None]
  - Periorbital contusion [None]
  - Premature baby [None]
  - Procedural complication [None]
  - Foetal distress syndrome [None]
  - Heart rate decreased [None]
  - Exposure during breast feeding [None]
